FAERS Safety Report 4603358-3 (Version None)
Quarter: 2005Q1

REPORT INFORMATION
  Report Type: 
  Country: None (occurrence: None)
  Receive Date: 20050309
  Receipt Date: 20040909
  Transmission Date: 20050727
  Serious: Yes (Hospitalization)
  Sender: FDA-Public Use
  Company Number: CM-MERCK-0409USA00597

PATIENT
  Age: 22 Year
  Sex: Male

DRUGS (3)
  1. STROMECTOL [Suspect]
     Route: 048
  2. QUININE [Concomitant]
     Route: 065
  3. ACETAMINOPHEN [Concomitant]
     Route: 065

REACTIONS (17)
  - ABASIA [None]
  - ASCITES [None]
  - ASTHENIA [None]
  - COMA [None]
  - DECUBITUS ULCER [None]
  - DYSPHAGIA [None]
  - HEADACHE [None]
  - HEPATOMEGALY [None]
  - MELAENA [None]
  - MOVEMENT DISORDER [None]
  - MUSCLE ATROPHY [None]
  - PAIN [None]
  - PARALYSIS [None]
  - PROTEIN TOTAL DECREASED [None]
  - PYREXIA [None]
  - SPEECH DISORDER [None]
  - URINARY INCONTINENCE [None]
